FAERS Safety Report 24670936 (Version 1)
Quarter: 2024Q4

REPORT INFORMATION
  Report Type: Spontaneous
  Country: US (occurrence: None)
  Receive Date: 20241127
  Receipt Date: 20241127
  Transmission Date: 20250115
  Serious: Yes (Disabling, Other)
  Sender: Public
  Company Number: None

PATIENT
  Sex: Female
  Weight: 99.45 kg

DRUGS (4)
  1. UBRELVY [Suspect]
     Active Substance: UBROGEPANT
     Indication: Migraine
     Dosage: OTHER QUANTITY : 1 TABLET(S);?OTHER FREQUENCY : 1 TABLET AT ON SET;?
     Route: 048
     Dates: start: 20240915
  2. PROPANOL (PROPRANOLOL HYDROCHLORIDE) [Concomitant]
     Active Substance: PROPRANOLOL HYDROCHLORIDE
  3. AJOVY [Concomitant]
     Active Substance: FREMANEZUMAB-VFRM
  4. Omega Multi Vitamin [Concomitant]

REACTIONS (3)
  - Chest discomfort [None]
  - Hypokinesia [None]
  - Muscle twitching [None]
